FAERS Safety Report 9916524 (Version 1)
Quarter: 2014Q1

REPORT INFORMATION
  Report Type: Spontaneous
  Country: ES (occurrence: None)
  Receive Date: 20140219
  Receipt Date: 20140219
  Transmission Date: 20141002
  Serious: Yes (Hospitalization, Disabling)
  Sender: FDA-Public Use
  Company Number: SYM-2014-15138

PATIENT
  Age: 57 Year
  Sex: Male

DRUGS (5)
  1. TETRABENAZINE [Suspect]
     Indication: TARDIVE DYSKINESIA
  2. TETRABENAZINE [Suspect]
     Indication: OFF LABEL USE
  3. DIAZEPAM [Suspect]
     Indication: TARDIVE DYSKINESIA
     Dosage: ON REQUEST
  4. DIAZEPAM [Suspect]
     Indication: OFF LABEL USE
     Dosage: ON REQUEST
  5. OLANZAPIN [Suspect]
     Indication: TARDIVE DYSKINESIA

REACTIONS (8)
  - Tardive dyskinesia [None]
  - Activities of daily living impaired [None]
  - Sedation [None]
  - Clumsiness [None]
  - Salivary hypersecretion [None]
  - Anxiety [None]
  - Insomnia [None]
  - Condition aggravated [None]
